FAERS Safety Report 8317126-2 (Version None)
Quarter: 2012Q2

REPORT INFORMATION
  Report Type: 
  Country: None (occurrence: None)
  Receive Date: 20120427
  Receipt Date: 20120424
  Transmission Date: 20120825
  Serious: No
  Sender: FDA-Public Use
  Company Number: US-PFIZER INC-2012101623

PATIENT
  Sex: Female
  Weight: 68.027 kg

DRUGS (12)
  1. PSEUDOEPHEDRINE HCL W/GUAIFENESIN [Concomitant]
     Indication: SINUS DISORDER
  2. OMEPRAZOLE [Concomitant]
     Indication: VOCAL CORD DISORDER
  3. CARDIZEM CD [Concomitant]
     Indication: CARDIAC DISORDER
     Dosage: 180 MG, DAILY
  4. LEVOTHYROXINE [Concomitant]
     Indication: THYROID DISORDER
     Dosage: 0.1 MG, DAILY
  5. PREMARIN [Suspect]
     Indication: VULVOVAGINAL DISCOMFORT
     Dosage: UNK, DAILY
     Route: 067
     Dates: start: 20111101, end: 20120422
  6. PROZAC [Concomitant]
     Indication: EMOTIONAL DISORDER
     Dosage: 10 MG, DAILY
  7. IBUPROFEN [Concomitant]
     Indication: ARTHRALGIA
     Dosage: 800 MG, 2X/DAY
  8. CONCERTA [Concomitant]
     Indication: EMOTIONAL DISORDER
     Dosage: 54 MG, DAILY
  9. PREMARIN [Suspect]
     Indication: PAIN
  10. PSEUDOEPHEDRINE HCL W/GUAIFENESIN [Concomitant]
     Indication: HYPERSENSITIVITY
     Dosage: 1200 MG, 2X/DAY
  11. AMBIEN [Concomitant]
     Indication: SLEEP DISORDER
     Dosage: 5 MG, DAILY
  12. OMEPRAZOLE [Concomitant]
     Indication: GASTROOESOPHAGEAL REFLUX DISEASE
     Dosage: 20 MG, 2X/DAY

REACTIONS (1)
  - VULVOVAGINAL SWELLING [None]
